FAERS Safety Report 25129014 (Version 2)
Quarter: 2025Q3

REPORT INFORMATION
  Report Type: Spontaneous
  Country: EU (occurrence: EU)
  Receive Date: 20250327
  Receipt Date: 20250701
  Transmission Date: 20251021
  Serious: Yes (Life-Threatening, Other)
  Sender: AUROBINDO
  Company Number: EU-SEMPA-2025-001826

PATIENT
  Age: 13 Year
  Sex: Female
  Weight: 68 kg

DRUGS (5)
  1. SERTRALINE HYDROCHLORIDE [Suspect]
     Active Substance: SERTRALINE HYDROCHLORIDE
     Indication: Depression
     Dosage: 100 MILLIGRAM, ONCE A DAY
     Route: 065
     Dates: start: 20201125, end: 20241213
  2. SERTRALINE HYDROCHLORIDE [Suspect]
     Active Substance: SERTRALINE HYDROCHLORIDE
     Indication: Anxiety
  3. MELATONIN [Concomitant]
     Active Substance: MELATONIN
     Indication: Product used for unknown indication
     Route: 065
  4. LISDEXAMFETAMINE DIMESYLATE [Concomitant]
     Active Substance: LISDEXAMFETAMINE DIMESYLATE
     Indication: Product used for unknown indication
     Route: 065
  5. Prionelle [Concomitant]
     Indication: Product used for unknown indication
     Dates: start: 20220410

REACTIONS (1)
  - Multiple acyl-coenzyme A dehydrogenase deficiency [Recovered/Resolved]

NARRATIVE: CASE EVENT DATE: 20220101
